FAERS Safety Report 15643312 (Version 1)
Quarter: 2018Q4

REPORT INFORMATION
  Report Type: Spontaneous
  Country: PL (occurrence: PL)
  Receive Date: 20181121
  Receipt Date: 20181121
  Transmission Date: 20190205
  Serious: Yes (Other)
  Sender: FDA-Public Use
  Company Number: PHHY2018PL160263

PATIENT
  Age: 62 Year
  Sex: Female

DRUGS (10)
  1. PAMIDRONIC ACID [Concomitant]
     Active Substance: PAMIDRONIC ACID
     Indication: PRODUCT USED FOR UNKNOWN INDICATION
     Dosage: UNK
     Route: 065
  2. TAMOXIFEN [Concomitant]
     Active Substance: TAMOXIFEN
     Indication: METASTATIC NEOPLASM
     Dosage: UNK
     Route: 065
  3. FULVESTRANT. [Concomitant]
     Active Substance: FULVESTRANT
     Indication: METASTATIC NEOPLASM
     Dosage: UNK
     Route: 065
  4. LETROZOLE. [Concomitant]
     Active Substance: LETROZOLE
     Indication: METASTATIC NEOPLASM
     Dosage: UNK
     Route: 065
  5. ZOLEDRONATE [Suspect]
     Active Substance: ZOLEDRONIC ACID
     Indication: PRODUCT USED FOR UNKNOWN INDICATION
     Dosage: UNK
     Route: 065
  6. CALCIUM [Concomitant]
     Active Substance: CALCIUM
     Indication: PRODUCT USED FOR UNKNOWN INDICATION
     Dosage: UNK
     Route: 065
  7. ENDOXAN [Suspect]
     Active Substance: CYCLOPHOSPHAMIDE
     Indication: METASTATIC NEOPLASM
     Dosage: UNK
     Route: 065
  8. EXEMESTANE. [Concomitant]
     Active Substance: EXEMESTANE
     Indication: METASTATIC NEOPLASM
     Dosage: UNK
     Route: 065
  9. VITAMIN D3 [Concomitant]
     Active Substance: CHOLECALCIFEROL
     Indication: PRODUCT USED FOR UNKNOWN INDICATION
     Dosage: UNK
     Route: 065
  10. DOXORUBICIN [Concomitant]
     Active Substance: DOXORUBICIN
     Indication: METASTATIC NEOPLASM
     Dosage: UNK
     Route: 065

REACTIONS (1)
  - Disease progression [Unknown]
